FAERS Safety Report 7032214-9 (Version None)
Quarter: 2010Q4

REPORT INFORMATION
  Report Type: 
  Country: None (occurrence: None)
  Receive Date: 20101007
  Receipt Date: 20101005
  Transmission Date: 20110411
  Serious: Yes (Death, Hospitalization)
  Sender: FDA-Public Use
  Company Number: US-BRISTOL-MYERS SQUIBB COMPANY-15320344

PATIENT
  Age: 57 Year
  Sex: Male
  Weight: 68 kg

DRUGS (4)
  1. ERBITUX [Suspect]
     Indication: OESOPHAGEAL CARCINOMA
     Dosage: LAST ADMINISTERED DATE:6JAN10.
     Dates: start: 20091201
  2. TAXOL [Suspect]
     Indication: OESOPHAGEAL CARCINOMA
     Dosage: LAST ADMINISTERED DATE:6JAN10.
     Dates: start: 20091201
  3. CISPLATIN [Suspect]
     Indication: OESOPHAGEAL CARCINOMA
     Dosage: LAST DOSE ADMINISTERED ON 6JAN10.
     Dates: start: 20091201
  4. RADIATION THERAPY [Suspect]
     Indication: OESOPHAGEAL CARCINOMA
     Dosage: 1DF= 5040 CGY EXTERNAL BEAM 3D, NO.FRACTION 28, NO. ELASPSED DAYS 41, LAST DATE 11JAN2010
     Dates: start: 20091201

REACTIONS (2)
  - OESOPHAGEAL FISTULA [None]
  - PNEUMONIA ASPIRATION [None]
